APPROVED DRUG PRODUCT: TOLTERODINE TARTRATE
Active Ingredient: TOLTERODINE TARTRATE
Strength: 2MG
Dosage Form/Route: TABLET;ORAL
Application: A210775 | Product #002 | TE Code: AB
Applicant: RISING PHARMA HOLDINGS INC
Approved: Dec 30, 2019 | RLD: No | RS: No | Type: RX